FAERS Safety Report 10430750 (Version 1)
Quarter: 2014Q3

REPORT INFORMATION
  Report Type: Spontaneous
  Country: US (occurrence: None)
  Receive Date: 20140813
  Receipt Date: 20140813
  Transmission Date: 20150326
  Serious: Yes (Other)
  Sender: FDA-Public Use
  Company Number: 10000053383

PATIENT
  Age: 84 Year
  Sex: Female

DRUGS (5)
  1. GLYBURIDE (GLIBENCLAMIDE) [Concomitant]
     Active Substance: GLYBURIDE
  2. PRAVASTATIN [Concomitant]
     Active Substance: PRAVASTATIN\PRAVASTATIN SODIUM
  3. NAMENDA XR [Suspect]
     Active Substance: MEMANTINE HYDROCHLORIDE
     Indication: DEMENTIA
     Dosage: 7MG (7MG, 1 IN 1 D), ORAL
     Route: 048
     Dates: start: 201312
  4. NAMENDA [Suspect]
     Active Substance: MEMANTINE HYDROCHLORIDE
     Indication: DEMENTIA
     Dosage: 20MG (10MG, 2 IN 1 D), ORAL
     Route: 048
     Dates: start: 201401
  5. ARICEPT [Concomitant]
     Active Substance: DONEPEZIL HYDROCHLORIDE

REACTIONS (6)
  - Somnolence [None]
  - Pneumonia [None]
  - Heart rate decreased [None]
  - Confusional state [None]
  - Influenza [None]
  - Atrioventricular block [None]

NARRATIVE: CASE EVENT DATE: 20140128
